FAERS Safety Report 11784185 (Version 1)
Quarter: 2015Q4

REPORT INFORMATION
  Report Type: Spontaneous
  Country: BR (occurrence: BR)
  Receive Date: 20151128
  Receipt Date: 20151128
  Transmission Date: 20160305
  Serious: Yes (Hospitalization, Other)
  Sender: FDA-Public Use
  Company Number: BR-BRISTOL-MYERS SQUIBB COMPANY-BMS-2015-080380

PATIENT
  Sex: Female
  Weight: 74 kg

DRUGS (1)
  1. YERVOY [Suspect]
     Active Substance: IPILIMUMAB
     Indication: MALIGNANT MELANOMA
     Dosage: 240 MG, UNK
     Route: 042
     Dates: start: 201510

REACTIONS (4)
  - Fatigue [Unknown]
  - Weight decreased [Unknown]
  - Neoplasm [Recovering/Resolving]
  - Tumour pain [Recovering/Resolving]
